FAERS Safety Report 14538471 (Version 2)
Quarter: 2021Q4

REPORT INFORMATION
  Report Type: Spontaneous
  Country: CA (occurrence: CA)
  Receive Date: 20180216
  Receipt Date: 20211223
  Transmission Date: 20220303
  Serious: Yes (Other)
  Sender: FDA-Public Use
  Company Number: CA-009507513-1802CAN008387

PATIENT
  Age: 64 Year
  Sex: Male

DRUGS (1)
  1. JANUVIA [Suspect]
     Active Substance: SITAGLIPTIN PHOSPHATE
     Indication: Hyperglycaemia
     Dosage: 100 MG, QD
     Route: 048
     Dates: start: 20160427

REACTIONS (3)
  - Malaise [Recovered/Resolved]
  - Pancreatitis [Recovered/Resolved]
  - Abdominal pain [Recovered/Resolved]

NARRATIVE: CASE EVENT DATE: 20170517
